FAERS Safety Report 6824658-2 (Version None)
Quarter: 2010Q3

REPORT INFORMATION
  Report Type: 
  Country: None (occurrence: None)
  Receive Date: 20100708
  Receipt Date: 20061113
  Transmission Date: 20110219
  Serious: No
  Sender: FDA-Public Use
  Company Number: US-PFIZER INC-2006143637

PATIENT
  Sex: Female

DRUGS (1)
  1. CHANTIX [Suspect]
     Indication: SMOKING CESSATION THERAPY
     Dates: end: 20060101

REACTIONS (5)
  - FEELING HOT [None]
  - INSOMNIA [None]
  - PAIN IN EXTREMITY [None]
  - PARAESTHESIA [None]
  - RESTLESS LEGS SYNDROME [None]
